FAERS Safety Report 10608814 (Version 1)
Quarter: 2014Q4

REPORT INFORMATION
  Report Type: Spontaneous
  Country: US (occurrence: US)
  Receive Date: 20141125
  Receipt Date: 20141125
  Transmission Date: 20150529
  Serious: No
  Sender: FDA-Public Use
  Company Number: US-GLAXOSMITHKLINE-US2014GSK008951

PATIENT
  Sex: Female

DRUGS (1)
  1. COREG [Suspect]
     Active Substance: CARVEDILOL
     Dosage: 6.25 DF, BID
     Dates: start: 2012

REACTIONS (7)
  - Tenderness [Unknown]
  - Feeling hot [Unknown]
  - Adverse drug reaction [Unknown]
  - Gingivitis [Not Recovered/Not Resolved]
  - Oral discomfort [Unknown]
  - Glossodynia [Unknown]
  - Oral pain [Unknown]
